FAERS Safety Report 6831666-4 (Version None)
Quarter: 2010Q3

REPORT INFORMATION
  Report Type: 
  Country: None (occurrence: None)
  Receive Date: 20100712
  Receipt Date: 20100629
  Transmission Date: 20110219
  Serious: Yes (Death)
  Sender: FDA-Public Use
  Company Number: DE-TEVA-239856ISR

PATIENT
  Sex: Male
  Weight: 57 kg

DRUGS (3)
  1. AZILECT [Suspect]
     Indication: PARKINSON'S DISEASE
     Route: 048
     Dates: start: 20100527, end: 20100628
  2. RAMIPRIL [Concomitant]
     Indication: HYPERTENSION
     Route: 048
  3. AMISULPRIDE [Concomitant]
     Indication: DEPRESSION
     Route: 048

REACTIONS (2)
  - HEAT STROKE [None]
  - HYPERTHERMIA [None]
